FAERS Safety Report 25085323 (Version 1)
Quarter: 2025Q1

REPORT INFORMATION
  Report Type: Spontaneous
  Country: JP (occurrence: JP)
  Receive Date: 20250317
  Receipt Date: 20250317
  Transmission Date: 20250408
  Serious: Yes (Death)
  Sender: TAIHO ONCOLOGY INC
  Company Number: JP-TAIHOP-2025-002689

PATIENT
  Age: 8 Decade
  Sex: Male

DRUGS (1)
  1. LONSURF [Suspect]
     Active Substance: TIPIRACIL HYDROCHLORIDE\TRIFLURIDINE
     Indication: Colorectal cancer
     Route: 048
     Dates: start: 20250218

REACTIONS (2)
  - Pulmonary thrombosis [Fatal]
  - Cardiac failure chronic [Fatal]
